FAERS Safety Report 7995608 (Version 2)
Quarter: 2020Q3

REPORT INFORMATION
  Report Type: Report from Study
  Country: US (occurrence: US)
  Receive Date: 20110617
  Receipt Date: 20111216
  Transmission Date: 20201104
  Serious: Yes (Hospitalization)
  Sender: FDA-Public Use
  Company Number: US-JNJFOC-20110603656

PATIENT
  Age: 48 Year
  Sex: Male
  Weight: 82 kg

DRUGS (12)
  1. PLACEBO [Suspect]
     Active Substance: UNSPECIFIED INGREDIENT
     Indication: PSORIASIS
     Route: 058
     Dates: start: 20060509
  2. DEPO?TESTOSTERONE [Concomitant]
     Active Substance: TESTOSTERONE CYPIONATE
     Route: 030
     Dates: start: 2001
  3. CITALOPRAM [Concomitant]
     Active Substance: CITALOPRAM HYDROBROMIDE
     Route: 048
     Dates: start: 20101015
  4. FLUTICASONE. [Concomitant]
     Active Substance: FLUTICASONE
     Route: 045
     Dates: start: 20101101
  5. CLARITIN [Concomitant]
     Active Substance: LORATADINE
     Route: 048
     Dates: start: 2003
  6. SUDAFED [Concomitant]
     Active Substance: PSEUDOEPHEDRINE HYDROCHLORIDE
     Route: 048
     Dates: start: 2005
  7. TRAZODONE HYDROCHLORIDE. [Concomitant]
     Active Substance: TRAZODONE HYDROCHLORIDE
     Route: 048
     Dates: start: 20101015
  8. PLACEBO [Suspect]
     Active Substance: UNSPECIFIED INGREDIENT
     Indication: PSORIASIS
     Route: 058
     Dates: start: 20060608
  9. USTEKINUMAB [Suspect]
     Active Substance: USTEKINUMAB
     Indication: PSORIASIS
     Route: 058
     Dates: start: 20060801
  10. EFFEXOR [Concomitant]
     Active Substance: VENLAFAXINE HYDROCHLORIDE
     Route: 048
     Dates: start: 20100202
  11. VYVANSE [Concomitant]
     Active Substance: LISDEXAMFETAMINE DIMESYLATE
     Route: 048
     Dates: start: 20101115
  12. USTEKINUMAB [Suspect]
     Active Substance: USTEKINUMAB
     Indication: PSORIASIS
     Route: 058
     Dates: start: 20110106

REACTIONS (1)
  - Hydrocephalus [Recovered/Resolved]

NARRATIVE: CASE EVENT DATE: 20110326
